FAERS Safety Report 20643343 (Version 1)
Quarter: 2022Q1

REPORT INFORMATION
  Report Type: Spontaneous
  Country: US (occurrence: None)
  Receive Date: 20220325
  Receipt Date: 20220325
  Transmission Date: 20220423
  Serious: Yes (Hospitalization)
  Sender: FDA-Public Use
  Company Number: None

PATIENT
  Age: 72 Year
  Sex: Male
  Weight: 84.9 kg

DRUGS (1)
  1. LUMASON [Suspect]
     Active Substance: SULFUR HEXAFLUORIDE
     Indication: Echocardiogram
     Route: 042
     Dates: start: 20220323, end: 20220323

REACTIONS (7)
  - Transient ischaemic attack [None]
  - Embolism arterial [None]
  - Malformation venous [None]
  - Cerebrovascular accident [None]
  - Air embolism [None]
  - Embolism venous [None]
  - Computerised tomogram abnormal [None]

NARRATIVE: CASE EVENT DATE: 20220323
